FAERS Safety Report 4734561-X (Version None)
Quarter: 2005Q3

REPORT INFORMATION
  Report Type: 
  Country: None (occurrence: None)
  Receive Date: 20050729
  Receipt Date: 20050715
  Transmission Date: 20060218
  Serious: Yes (Other)
  Sender: FDA-Public Use
  Company Number: SP00464

PATIENT
  Sex: Male

DRUGS (3)
  1. XIFAXAN [Suspect]
  2. PREDNISONE [Suspect]
     Dosage: 60MG/QD
  3. IMURAN [Concomitant]

REACTIONS (1)
  - DIABETES MELLITUS [None]
